FAERS Safety Report 4319886-4 (Version None)
Quarter: 2004Q1

REPORT INFORMATION
  Report Type: 
  Country: None (occurrence: None)
  Receive Date: 20040319
  Receipt Date: 20040312
  Transmission Date: 20041129
  Serious: Yes (Other)
  Sender: FDA-Public Use
  Company Number: FR-BRISTOL-MYERS SQUIBB COMPANY-12534327

PATIENT
  Sex: Male

DRUGS (1)
  1. APROVEL TABS 300 MG [Suspect]
     Indication: HYPERTENSION
     Dosage: ^TREATED BBOUT 1 MONTH^
     Route: 048
     Dates: start: 20040101, end: 20040101

REACTIONS (1)
  - RENAL FAILURE CHRONIC [None]
